FAERS Safety Report 7845685 (Version 2)
Quarter: 2012Q4

REPORT INFORMATION
  Report Type: 
  Country: ES (occurrence: ES)
  Receive Date: 20110308
  Receipt Date: 20120920
  Transmission Date: 20130627
  Serious: Yes (Disabling, Other)
  Sender: FDA-Public Use
  Company Number: ES-JNJFOC-20110300579

PATIENT
  Age: 39 None
  Sex: Female
  Weight: 76 kg

DRUGS (3)
  1. STELARA [Suspect]
     Indication: PSORIASIS
     Route: 058
     Dates: start: 20110205
  2. EUTIROX [Concomitant]
     Indication: HYPOTHYROIDISM
  3. LOSARTAN [Concomitant]
     Indication: HYPOTENSION

REACTIONS (3)
  - Headache [Recovered/Resolved]
  - Hypotension [Recovered/Resolved]
  - Aphthous stomatitis [Recovered/Resolved]
